FAERS Safety Report 18563845 (Version 1)
Quarter: 2020Q4

REPORT INFORMATION
  Report Type: Other
  Country: US (occurrence: US)
  Receive Date: 20201201
  Receipt Date: 20201201
  Transmission Date: 20210114
  Serious: Yes (Life-Threatening, Other)
  Sender: FDA-Public Use
  Company Number: US-ROCHE-2722916

PATIENT
  Age: 19 Year
  Weight: 106 kg

DRUGS (2)
  1. ALTEPLASE. [Suspect]
     Active Substance: ALTEPLASE
     Indication: PULMONARY EMBOLISM
     Dosage: TPA WAS DELIVERED THROUGH THE INFUSION CATHETER INTO THE PAS AT A RATE OF 0.03-0.06 MG/KG/HR WITH A
     Route: 042
  2. HEPARIN [Concomitant]
     Active Substance: HEPARIN SODIUM
     Indication: THROMBOSIS
     Route: 065

REACTIONS (4)
  - Treatment failure [Unknown]
  - Cardiopulmonary failure [Recovering/Resolving]
  - Therapeutic product effect incomplete [Unknown]
  - Drug ineffective [Unknown]
